FAERS Safety Report 6354100-X (Version None)
Quarter: 2009Q3

REPORT INFORMATION
  Report Type: 
  Country: None (occurrence: None)
  Receive Date: 20090914
  Receipt Date: 20090903
  Transmission Date: 20100115
  Serious: Yes (Hospitalization)
  Sender: FDA-Public Use
  Company Number: PHHO2009JP09762

PATIENT
  Sex: Female
  Weight: 48 kg

DRUGS (9)
  1. EXELON [Suspect]
     Indication: DEMENTIA ALZHEIMER'S TYPE
     Dosage: 4.5 MG, UNK
     Route: 062
     Dates: start: 20081107, end: 20081204
  2. EXELON [Suspect]
     Dosage: 9 MG, UNK
     Route: 062
     Dates: start: 20081205, end: 20081225
  3. EXELON [Suspect]
     Dosage: 13.5 MG, UNK
     Route: 062
     Dates: start: 20081216, end: 20090129
  4. EXELON [Suspect]
     Dosage: 18 MG, UNK
     Route: 062
     Dates: start: 20090130, end: 20090804
  5. RISPERDAL [Suspect]
     Indication: AGITATION
     Dosage: 1 MG, QD
     Route: 048
     Dates: start: 20040818
  6. SEROQUEL [Suspect]
     Dosage: 25 MG, QD
     Dates: start: 20080306, end: 20090802
  7. SEROQUEL [Suspect]
     Dosage: 6.25 MG, UNK
     Route: 048
     Dates: start: 20090803, end: 20090804
  8. NORVASC [Suspect]
     Indication: HYPERTENSION
     Dosage: 5 MG, UNK
     Route: 048
     Dates: start: 20040101, end: 20090731
  9. NORVASC [Suspect]
     Dosage: 2.5 MG, UNK
     Dates: start: 20090801

REACTIONS (10)
  - ABASIA [None]
  - CRANIOTOMY [None]
  - DIARRHOEA [None]
  - DIZZINESS [None]
  - GAIT DISTURBANCE [None]
  - HAEMORRHAGE SUBCUTANEOUS [None]
  - PARALYSIS [None]
  - RESTLESSNESS [None]
  - STRESS [None]
  - SUBDURAL HAEMATOMA [None]
